FAERS Safety Report 7521272-0 (Version None)
Quarter: 2011Q2

REPORT INFORMATION
  Report Type: 
  Country: None (occurrence: None)
  Receive Date: 20110603
  Receipt Date: 20101129
  Transmission Date: 20111010
  Serious: Yes (Hospitalization)
  Sender: FDA-Public Use
  Company Number: US-BAYER-2010-003078

PATIENT
  Age: 22 Year
  Sex: Female
  Weight: 88 kg

DRUGS (5)
  1. YAZ [Suspect]
     Indication: PRODUCT USED FOR UNKNOWN INDICATION
     Dosage: UNK
     Dates: start: 20100818, end: 20101001
  2. PERCOCET [Concomitant]
  3. LOVENOX [Concomitant]
  4. WARFARIN SODIUM [Concomitant]
  5. COUMADIN [Concomitant]

REACTIONS (1)
  - PULMONARY EMBOLISM [None]
